FAERS Safety Report 10562134 (Version 1)
Quarter: 2014Q4

REPORT INFORMATION
  Report Type: Report from Study
  Country: CA (occurrence: CA)
  Receive Date: 20141104
  Receipt Date: 20141104
  Transmission Date: 20150529
  Serious: Yes (Hospitalization)
  Sender: FDA-Public Use
  Company Number: CA-BIOGENIDEC-2014BI112887

PATIENT
  Age: 38 Year
  Sex: Female

DRUGS (1)
  1. TYSABRI [Suspect]
     Active Substance: NATALIZUMAB
     Indication: MULTIPLE SCLEROSIS
     Route: 042
     Dates: start: 20081216

REACTIONS (3)
  - Hysterectomy [Recovered/Resolved with Sequelae]
  - Device related infection [Not Recovered/Not Resolved]
  - Oophorectomy [Recovered/Resolved with Sequelae]

NARRATIVE: CASE EVENT DATE: 20141020
